FAERS Safety Report 9644512 (Version 1)
Quarter: 2013Q4

REPORT INFORMATION
  Report Type: Spontaneous
  Country: CN (occurrence: CN)
  Receive Date: 20131025
  Receipt Date: 20131025
  Transmission Date: 20140711
  Serious: Yes (Other)
  Sender: FDA-Public Use
  Company Number: CN-ASTRAZENECA-2013SE77379

PATIENT
  Age: 80 Year
  Sex: Female

DRUGS (5)
  1. BRILINTA [Suspect]
     Indication: ACUTE MYOCARDIAL INFARCTION
     Route: 048
     Dates: start: 20131017, end: 20131018
  2. PLAVIX [Concomitant]
     Dates: end: 20131017
  3. ACARBOSE [Concomitant]
     Indication: TYPE 2 DIABETES MELLITUS
     Route: 048
  4. MONOPRIL [Concomitant]
  5. BUDAXIU [Concomitant]

REACTIONS (2)
  - Agitation [Recovering/Resolving]
  - Confusional state [Recovering/Resolving]
